FAERS Safety Report 20910714 (Version 1)
Quarter: 2022Q2

REPORT INFORMATION
  Report Type: Spontaneous
  Country: CN (occurrence: None)
  Receive Date: 20220603
  Receipt Date: 20220603
  Transmission Date: 20220721
  Serious: Yes (Other)
  Sender: FDA-Public Use
  Company Number: CN-ROCHE-3105288

PATIENT
  Age: 65 Year
  Sex: Female
  Weight: 65 kg

DRUGS (3)
  1. PERTUZUMAB [Suspect]
     Active Substance: PERTUZUMAB
     Indication: Breast cancer
     Route: 041
     Dates: start: 20220426, end: 20220426
  2. TRASTUZUMAB [Suspect]
     Active Substance: TRASTUZUMAB
     Indication: Breast cancer
     Route: 041
     Dates: start: 20220426, end: 20220426
  3. PACLITAXEL [Suspect]
     Active Substance: PACLITAXEL
     Indication: Breast cancer
     Route: 041
     Dates: start: 20220426, end: 20220426

REACTIONS (3)
  - Agranulocytosis [Recovering/Resolving]
  - Pyrexia [Recovered/Resolved]
  - Diarrhoea [Recovered/Resolved]

NARRATIVE: CASE EVENT DATE: 20220501
